FAERS Safety Report 7434518-4 (Version None)
Quarter: 2011Q2

REPORT INFORMATION
  Report Type: 
  Country: None (occurrence: None)
  Receive Date: 20110425
  Receipt Date: 20110408
  Transmission Date: 20111010
  Serious: Yes (Hospitalization)
  Sender: FDA-Public Use
  Company Number: FR-CELGENEUS-056-C5013-11012100

PATIENT
  Sex: Male
  Weight: 89 kg

DRUGS (21)
  1. DEXAMETHASONE [Suspect]
     Indication: MULTIPLE MYELOMA
     Dosage: 25 MILLIGRAM
     Route: 065
     Dates: start: 20100421
  2. CLAMOXYL [Concomitant]
     Indication: INFECTION PROPHYLAXIS
     Dosage: 2 GRAM
     Route: 048
     Dates: start: 20100421
  3. LENALIDOMIDE [Suspect]
     Dosage: 20 MILLIGRAM
     Route: 048
     Dates: start: 20110217
  4. DEXAMETHASONE [Suspect]
     Dosage: 20 MILLIGRAM
     Route: 065
     Dates: start: 20110217
  5. AVODART [Concomitant]
     Indication: PROSTATIC ADENOMA
     Dosage: .5 MILLIGRAM
     Route: 048
     Dates: start: 20040101
  6. ATACAND [Concomitant]
     Dosage: 16 MILLIGRAM
     Route: 048
     Dates: start: 20030101
  7. LENALIDOMIDE [Suspect]
     Dosage: 25 MILLIGRAM
     Route: 048
     Dates: start: 20101224, end: 20110118
  8. FLECAINE [Concomitant]
     Dosage: 200 MILLIGRAM
     Route: 048
     Dates: start: 20080101
  9. PARIET [Concomitant]
     Dosage: 10 MILLIGRAM
     Route: 048
     Dates: start: 20070101
  10. DEXAMETHASONE [Suspect]
     Dosage: 25 MILLIGRAM
     Route: 065
     Dates: start: 20101224, end: 20110118
  11. BACTRIM [Concomitant]
     Indication: INFECTION PROPHYLAXIS
     Dosage: 1 TABLET
     Route: 048
     Dates: start: 20100421
  12. KARDEGIC [Concomitant]
     Indication: THROMBOSIS PROPHYLAXIS
     Dosage: 75 MICROGRAM
     Route: 048
     Dates: start: 20100421
  13. HEXAQUINE [Concomitant]
     Indication: PROPHYLAXIS
     Route: 048
     Dates: start: 20100408
  14. CRESTOR [Concomitant]
     Dosage: 10 MILLIGRAM
     Route: 048
     Dates: start: 20030101
  15. PERMIXON [Concomitant]
     Indication: PROSTATIC ADENOMA
     Dosage: 160 MILLIGRAM
     Route: 048
     Dates: start: 20040101
  16. LENALIDOMIDE [Suspect]
     Indication: MULTIPLE MYELOMA
     Dosage: 25 MILLIGRAM
     Route: 048
     Dates: start: 20100421
  17. ZOPHREN [Concomitant]
     Dosage: 16 MILLIGRAM
     Route: 048
     Dates: start: 20100421
  18. EMEND [Concomitant]
     Dosage: 80 MILLIGRAM
     Route: 048
     Dates: start: 20100421
  19. ZELITREX [Concomitant]
     Indication: PROPHYLAXIS
     Dosage: 1000 MILLIGRAM
     Route: 048
     Dates: start: 20100421
  20. DURAGESIC-100 [Concomitant]
     Route: 062
     Dates: start: 20101103
  21. ELUDUL [Concomitant]
     Dosage: 9 DOSAGE FORMS
     Route: 002
     Dates: start: 20101201

REACTIONS (1)
  - PNEUMONIA [None]
